FAERS Safety Report 9411352 (Version 1)
Quarter: 2013Q3

REPORT INFORMATION
  Report Type: Spontaneous
  Country: US (occurrence: US)
  Receive Date: 20130722
  Receipt Date: 20130722
  Transmission Date: 20140515
  Serious: Yes (Hospitalization)
  Sender: FDA-Public Use
  Company Number: PHEH2012US025908

PATIENT
  Sex: Female

DRUGS (3)
  1. DIOVAN [Suspect]
  2. LISINOPRIL [Suspect]
  3. VERAPAMIL [Concomitant]
     Dosage: UNK UKN, UNK

REACTIONS (3)
  - Asthma [Unknown]
  - Chest pain [Unknown]
  - Constipation [Unknown]
